FAERS Safety Report 8149952-7 (Version None)
Quarter: 2012Q1

REPORT INFORMATION
  Report Type: 
  Country: None (occurrence: None)
  Receive Date: 20120218
  Receipt Date: 20111212
  Transmission Date: 20120608
  Serious: No
  Sender: FDA-Public Use
  Company Number: US-ALLERGAN-1116236US

PATIENT
  Age: 53 Year
  Sex: Male

DRUGS (2)
  1. BOTULINUM TOXIN TYPE A [Suspect]
     Indication: QUADRIPLEGIA
  2. BOTULINUM TOXIN TYPE A [Suspect]
     Indication: MUSCLE SPASMS
     Dosage: 400 UNITS, SINGLE
     Route: 030
     Dates: start: 20111209

REACTIONS (2)
  - MUSCULAR WEAKNESS [None]
  - SENSORY DISTURBANCE [None]
